FAERS Safety Report 5194740-7 (Version None)
Quarter: 2006Q4

REPORT INFORMATION
  Report Type: 
  Country: None (occurrence: None)
  Receive Date: 20061226
  Receipt Date: 20061226
  Transmission Date: 20070319
  Serious: Yes (Hospitalization)
  Sender: FDA-Public Use
  Company Number: None

PATIENT
  Sex: Female
  Weight: 45.4 kg

DRUGS (1)
  1. TEMOZOLOMIDE [Suspect]
     Dosage: 1050 MG

REACTIONS (5)
  - DISORIENTATION [None]
  - GRIP STRENGTH DECREASED [None]
  - HAEMATOMA [None]
  - MOVEMENT DISORDER [None]
  - POSTURE ABNORMAL [None]
